FAERS Safety Report 7771975-8 (Version None)
Quarter: 2011Q3

REPORT INFORMATION
  Report Type: 
  Country: None (occurrence: None)
  Receive Date: 20110922
  Receipt Date: 20110128
  Transmission Date: 20111222
  Serious: No
  Sender: FDA-Public Use
  Company Number: US-ASTRAZENECA-2011SE05135

PATIENT
  Age: 59 Year
  Sex: Female
  Weight: 56 kg

DRUGS (12)
  1. HYDROCHLOROTHIAZIDE [Concomitant]
  2. ASCORBIC ACID [Concomitant]
  3. LUNESTA [Suspect]
     Route: 048
     Dates: start: 20101201
  4. ECHINACEA [Concomitant]
  5. TRANDOLAPRIL [Concomitant]
  6. ABILIFY [Suspect]
  7. MULTI-VITAMIN [Concomitant]
  8. SEROQUEL [Suspect]
     Route: 048
  9. BYETTA [Suspect]
  10. VITAMIN D [Concomitant]
  11. LUNESTA [Suspect]
     Indication: INSOMNIA
     Route: 048
     Dates: start: 20101201, end: 20101201
  12. PROTONIX [Concomitant]

REACTIONS (13)
  - WEIGHT DECREASED [None]
  - SOMNOLENCE [None]
  - SLEEP APNOEA SYNDROME [None]
  - BINGE EATING [None]
  - AMNESIA [None]
  - WEIGHT INCREASED [None]
  - ANXIETY DISORDER [None]
  - GASTROOESOPHAGEAL REFLUX DISEASE [None]
  - SINUS DISORDER [None]
  - PANCREATITIS [None]
  - TRANSIENT ISCHAEMIC ATTACK [None]
  - DIABETES MELLITUS [None]
  - HYPERTENSION [None]
